FAERS Safety Report 4301028-2 (Version None)
Quarter: 2004Q1

REPORT INFORMATION
  Report Type: 
  Country: None (occurrence: None)
  Receive Date: 20040219
  Receipt Date: 20040213
  Transmission Date: 20041129
  Serious: Yes (Life-Threatening)
  Sender: FDA-Public Use
  Company Number: GBR-2004-0000908

PATIENT
  Age: 64 Year
  Sex: Male
  Weight: 90 kg

DRUGS (7)
  1. OXYCONTIN [Suspect]
     Indication: ANALGESIC EFFECT
     Dosage: 20 MG, DAILY, ORAL
     Route: 048
     Dates: start: 20040120, end: 20040120
  2. PROPOFOL [Suspect]
     Indication: GENERAL ANAESTHESIA
     Dosage: 3.5 MCG, INTRAVENOUS
     Route: 042
     Dates: start: 20040120, end: 20040120
  3. REMIFENTANIL [Suspect]
     Indication: GENERAL ANAESTHESIA
     Dosage: 0.4 MCG/KG, MINUTE, INTRAVENOUS
     Route: 042
     Dates: start: 20040120, end: 20040120
  4. ATENOLOL [Concomitant]
  5. LEVOTHYROXINE SODIUM [Concomitant]
  6. ACETYLSALICYLIC ACID [Concomitant]
  7. PRAVASTATIN [Concomitant]

REACTIONS (2)
  - BRADYCARDIA [None]
  - HYPOTENSION [None]
